FAERS Safety Report 23745344 (Version 1)
Quarter: 2024Q2

REPORT INFORMATION
  Report Type: Spontaneous
  Country: US (occurrence: US)
  Receive Date: 20240416
  Receipt Date: 20240416
  Transmission Date: 20240715
  Serious: Yes (Life-Threatening, Hospitalization, Other)
  Sender: FDA-Public Use
  Company Number: US-AMGEN-USASP2024073589

PATIENT
  Age: 57 Year
  Sex: Male

DRUGS (1)
  1. PROLIA [Suspect]
     Active Substance: DENOSUMAB
     Indication: Product used for unknown indication
     Dosage: UNK
     Route: 065

REACTIONS (8)
  - Hypocalcaemia [Recovered/Resolved]
  - Hydronephrosis [Unknown]
  - Metastases to bone [Unknown]
  - Renal impairment [Unknown]
  - Bladder mass [Unknown]
  - Prostatic mass [Unknown]
  - Emphysema [Unknown]
  - Respiratory disorder [Unknown]

NARRATIVE: CASE EVENT DATE: 20240320
